FAERS Safety Report 22944736 (Version 3)
Quarter: 2024Q1

REPORT INFORMATION
  Report Type: Report from Study
  Country: MX (occurrence: MX)
  Receive Date: 20230914
  Receipt Date: 20240301
  Transmission Date: 20240409
  Serious: Yes (Hospitalization)
  Sender: FDA-Public Use
  Company Number: MX-BIOGEN-2023BI01225521

PATIENT
  Age: 27 Year
  Sex: Female

DRUGS (2)
  1. TYSABRI [Suspect]
     Active Substance: NATALIZUMAB
     Indication: Multiple sclerosis
     Route: 050
     Dates: start: 20170928, end: 202305
  2. TYSABRI [Suspect]
     Active Substance: NATALIZUMAB
     Route: 050
     Dates: start: 201801, end: 202305

REACTIONS (4)
  - Feeding disorder [Unknown]
  - Blood disorder [Unknown]
  - Akinesia [Not Recovered/Not Resolved]
  - Salivary hypersecretion [Unknown]

NARRATIVE: CASE EVENT DATE: 20230601
